FAERS Safety Report 23456895 (Version 3)
Quarter: 2024Q1

REPORT INFORMATION
  Report Type: Report from Study
  Country: US (occurrence: US)
  Receive Date: 20240130
  Receipt Date: 20240305
  Transmission Date: 20240409
  Serious: Yes (Hospitalization, Other)
  Sender: FDA-Public Use
  Company Number: US-002147023-NVSC2021US206870

PATIENT
  Sex: Female
  Weight: 92.063 kg

DRUGS (6)
  1. TREPROSTINIL [Suspect]
     Active Substance: TREPROSTINIL
     Indication: Pulmonary arterial hypertension
     Dosage: UNK UNK, CONT, 10 NG/KG/MIN, STRENGTH: 2.5 MG/ML
     Route: 042
     Dates: start: 20210827
  2. TREPROSTINIL [Suspect]
     Active Substance: TREPROSTINIL
     Dosage: UNK UNK, CONT, 48 NG/KG/MIN, STRENGTH: 2.5 MG/ML
     Route: 042
     Dates: start: 20210827
  3. TREPROSTINIL [Suspect]
     Active Substance: TREPROSTINIL
     Dosage: UNK UNK, CONT, 50 NG/KG/MIN, STRENGTH: 2.5 MG/ML
     Route: 042
     Dates: start: 20210827
  4. TREPROSTINIL [Suspect]
     Active Substance: TREPROSTINIL
     Dosage: UNK UNK, CONT, 60 NG/KG/MIN, STRENGTH: 5 MG/ML
     Route: 042
     Dates: start: 20210827
  5. TREPROSTINIL [Suspect]
     Active Substance: TREPROSTINIL
     Dosage: UNK UNK, CONT, 60 NG/KG/MIN, STRENGTH: 5 MG/ML
     Route: 042
     Dates: start: 20210827
  6. SILDENAFIL CITRATE [Concomitant]
     Active Substance: SILDENAFIL CITRATE
     Indication: Product used for unknown indication
     Dosage: UNK
     Route: 065

REACTIONS (8)
  - Renal disorder [Unknown]
  - Therapeutic procedure [Unknown]
  - Stress [Unknown]
  - Frustration tolerance decreased [Unknown]
  - Malaise [Unknown]
  - Pain in extremity [Unknown]
  - Headache [Unknown]
  - Diarrhoea [Unknown]
